FAERS Safety Report 7343581-0 (Version None)
Quarter: 2011Q1

REPORT INFORMATION
  Report Type: 
  Country: None (occurrence: None)
  Receive Date: 20110310
  Receipt Date: 20100525
  Transmission Date: 20110831
  Serious: No
  Sender: FDA-Public Use
  Company Number: A0862652A

PATIENT
  Age: 53 Year
  Sex: Female

DRUGS (3)
  1. NICORETTE [Suspect]
     Indication: SMOKING CESSATION THERAPY
     Dosage: 4MG THREE TIMES PER DAY
     Route: 002
     Dates: start: 20100101
  2. CHANTIX [Suspect]
     Indication: SMOKING CESSATION THERAPY
     Dosage: .5MG PER DAY
     Route: 048
     Dates: start: 20100227, end: 20100503
  3. ADVAIR DISKUS 100/50 [Concomitant]
     Indication: ASTHMA
     Route: 055

REACTIONS (9)
  - CONSTIPATION [None]
  - DEPRESSION [None]
  - DEPRESSED MOOD [None]
  - CONFUSIONAL STATE [None]
  - ADVERSE EVENT [None]
  - ABNORMAL DREAMS [None]
  - IMPATIENCE [None]
  - FLATULENCE [None]
  - FEELING ABNORMAL [None]
